FAERS Safety Report 8641294 (Version 4)
Quarter: 2013Q1

REPORT INFORMATION
  Report Type: Spontaneous
  Country: FR (occurrence: FR)
  Receive Date: 20120628
  Receipt Date: 20130307
  Transmission Date: 20140127
  Serious: Yes (Hospitalization)
  Sender: FDA-Public Use
  Company Number: FR-ROCHE-1080243

PATIENT
  Age: 57 Year
  Sex: Female

DRUGS (5)
  1. APRANAX [Suspect]
     Indication: RHEUMATOID ARTHRITIS
     Route: 048
     Dates: start: 2002, end: 20120525
  2. METHOTREXAT [Suspect]
     Indication: RHEUMATOID ARTHRITIS
     Dosage: REPORTED AS LMETH
     Route: 048
     Dates: end: 20120528
  3. ENBREL [Suspect]
     Indication: RHEUMATOID ARTHRITIS
     Route: 058
     Dates: start: 20100928, end: 201204
  4. LAMALINE [Suspect]
     Indication: RHEUMATOID ARTHRITIS
     Route: 048
     Dates: start: 20120517, end: 20120525
  5. SPECIAFOLDINE [Suspect]
     Indication: RHEUMATOID ARTHRITIS
     Route: 048
     Dates: start: 2002, end: 20120525

REACTIONS (2)
  - Neutropenia [Recovered/Resolved]
  - Genital ulceration [Recovered/Resolved]
